FAERS Safety Report 9109585 (Version 4)
Quarter: 2016Q1

REPORT INFORMATION
  Report Type: Spontaneous
  Country: US (occurrence: US)
  Receive Date: 20130222
  Receipt Date: 20160105
  Transmission Date: 20160526
  Serious: Yes (Hospitalization, Disabling, Other)
  Sender: FDA-Public Use
  Company Number: US-MERCK-1301USA000977

PATIENT
  Sex: Female

DRUGS (5)
  1. FOSAMAX [Suspect]
     Active Substance: ALENDRONATE SODIUM
     Indication: OSTEOPOROSIS
     Dosage: 10 MG, UNKNOWN
     Route: 048
     Dates: start: 20000413, end: 2001
  2. FOSAMAX [Suspect]
     Active Substance: ALENDRONATE SODIUM
     Indication: OSTEOPENIA
     Dosage: 70 MG, QW
     Route: 048
     Dates: start: 2001
  3. FOSAMAX PLUS D [Suspect]
     Active Substance: ALENDRONATE SODIUM\CHOLECALCIFEROL
     Indication: OSTEOPOROSIS
     Dosage: UNK, UNKNOWN
     Route: 048
     Dates: start: 2007, end: 20081119
  4. CALCIUM (UNSPECIFIED) [Concomitant]
     Active Substance: CALCIUM
     Indication: OSTEOPENIA
     Dosage: UNK, UNKNOWN
     Route: 065
  5. ALENDRONATE SODIUM. [Suspect]
     Active Substance: ALENDRONATE SODIUM
     Indication: OSTEOPOROSIS
     Dosage: 70 MG, QW
     Route: 048
     Dates: start: 20090204

REACTIONS (29)
  - Tooth fracture [Unknown]
  - Osteoarthritis [Unknown]
  - Femur fracture [Not Recovered/Not Resolved]
  - Osteoarthritis [Unknown]
  - Stress urinary incontinence [Unknown]
  - Cerebral small vessel ischaemic disease [Not Recovered/Not Resolved]
  - Gastrooesophageal reflux disease [Unknown]
  - Osteoporosis [Not Recovered/Not Resolved]
  - Stress fracture [Not Recovered/Not Resolved]
  - Hormone therapy [Unknown]
  - Asthma [Unknown]
  - Nausea [Unknown]
  - Cervical dysplasia [Unknown]
  - Femur fracture [Not Recovered/Not Resolved]
  - Femur fracture [Not Recovered/Not Resolved]
  - Intramedullary rod insertion [Recovering/Resolving]
  - Artificial crown procedure [Unknown]
  - Contusion [Unknown]
  - Hyperlipidaemia [Unknown]
  - Constipation [Unknown]
  - Low turnover osteopathy [Not Recovered/Not Resolved]
  - Excoriation [Unknown]
  - Cerebral atrophy [Unknown]
  - Osteoarthritis [Unknown]
  - Head injury [Unknown]
  - Laceration [Unknown]
  - Motion sickness [Unknown]
  - Hand fracture [Unknown]
  - Plantar fasciitis [Unknown]

NARRATIVE: CASE EVENT DATE: 2000
